FAERS Safety Report 22129276 (Version 2)
Quarter: 2023Q1

REPORT INFORMATION
  Report Type: Spontaneous
  Country: IE (occurrence: IE)
  Receive Date: 20230323
  Receipt Date: 20230328
  Transmission Date: 20230417
  Serious: Yes (Life-Threatening, Hospitalization, Other)
  Sender: FDA-Public Use
  Company Number: None

PATIENT
  Sex: Female

DRUGS (7)
  1. KEPPRA [Suspect]
     Active Substance: LEVETIRACETAM
     Indication: Dyskinesia
     Dosage: TWO DOSES
  2. LORAZEPAM [Suspect]
     Active Substance: LORAZEPAM
     Indication: Dyskinesia
     Dosage: TWO DOSES
  3. PHENOBARBITAL [Suspect]
     Active Substance: PHENOBARBITAL
     Indication: Dyskinesia
     Dosage: TWO DOSES
  4. DULOXETINE [Suspect]
     Active Substance: DULOXETINE
     Indication: Fibromyalgia
     Dosage: 60 MILLIGRAM, DAILY
  5. FENTANYL [Concomitant]
     Active Substance: FENTANYL
     Indication: Dyskinesia
     Dosage: UNK
  6. ATROPINE [Concomitant]
     Active Substance: ATROPINE
     Indication: Dyskinesia
     Dosage: UNK
  7. SUCCINYLCHOLINE [Concomitant]
     Active Substance: SUCCINYLCHOLINE
     Indication: Dyskinesia
     Dosage: UNK

REACTIONS (6)
  - Dyskinesia [Unknown]
  - Apnoea [Unknown]
  - Respiratory disorder neonatal [Not Recovered/Not Resolved]
  - Premature baby [Unknown]
  - Hypotonia [Not Recovered/Not Resolved]
  - Maternal exposure during pregnancy [Unknown]
